FAERS Safety Report 5810806-X (Version None)
Quarter: 2008Q3

REPORT INFORMATION
  Report Type: 
  Country: None (occurrence: None)
  Receive Date: 20080709
  Receipt Date: 20080624
  Transmission Date: 20090109
  Serious: Yes (Death, Hospitalization)
  Sender: FDA-Public Use
  Company Number: VISP-NO-0806S-0318

PATIENT
  Age: 57 Year
  Sex: Male

DRUGS (13)
  1. VISIPAQUE [Suspect]
     Indication: ARTERIAL STENOSIS
     Dosage: SINGLE DOSE, I.V.
     Route: 042
     Dates: start: 20080430, end: 20080430
  2. PLAVIX [Concomitant]
  3. D-LYSINE ACETYLSALICYLATE (KARDEGIC) [Concomitant]
  4. BUFLOMEDIL HYDORCHLORIDE (FONZYLANE) [Concomitant]
  5. RAMIPRIL [Concomitant]
  6. ATORVASTATINE (TAHOR) [Concomitant]
  7. LERCANIDIPINE (ZANIDIP) [Concomitant]
  8. TRAMADOL (TOPALGIC) [Concomitant]
  9. HUMALOG [Concomitant]
  10. SUFENTA [Concomitant]
  11. PROPOFOL (DIPIVAN) [Concomitant]
  12. HEPARIN SODIUM [Concomitant]
  13. LIDOCAINE (XYLOCAINE) [Concomitant]

REACTIONS (13)
  - ACUTE PULMONARY OEDEMA [None]
  - AGITATION [None]
  - CHEST PAIN [None]
  - CONDITION AGGRAVATED [None]
  - CONTRAST MEDIA REACTION [None]
  - HAEMATOCRIT INCREASED [None]
  - HAEMOGLOBIN INCREASED [None]
  - RENAL FAILURE ACUTE [None]
  - RHABDOMYOLYSIS [None]
  - SEPTIC SHOCK [None]
  - SHOCK [None]
  - STAPHYLOCOCCAL INFECTION [None]
  - TOXIC EPIDERMAL NECROLYSIS [None]
